FAERS Safety Report 5455513-0 (Version None)
Quarter: 2007Q3

REPORT INFORMATION
  Report Type: 
  Country: None (occurrence: None)
  Receive Date: 20070913
  Receipt Date: 20070913
  Transmission Date: 20080115
  Serious: No
  Sender: FDA-Public Use
  Company Number: None

PATIENT
  Sex: Female
  Weight: 73.9363 kg

DRUGS (5)
  1. ISOTRETINOIN [Suspect]
     Indication: ACNE
     Dosage: 40 MG PO QAM 30 MG PO QHS
     Route: 048
     Dates: start: 20070821, end: 20070904
  2. ISOTRETINOIN [Suspect]
     Indication: NO THERAPEUTIC RESPONSE
     Dosage: 40 MG PO QAM 30 MG PO QHS
     Route: 048
     Dates: start: 20070821, end: 20070904
  3. INDOCIN [Concomitant]
  4. EFFEXOR [Concomitant]
  5. FLONASE [Concomitant]

REACTIONS (1)
  - ERYTHEMA NODOSUM [None]
